FAERS Safety Report 12012746 (Version 1)
Quarter: 2016Q1

REPORT INFORMATION
  Report Type: Report from Study
  Country: CA (occurrence: CA)
  Receive Date: 20160205
  Receipt Date: 20160205
  Transmission Date: 20160526
  Serious: Yes (Hospitalization)
  Sender: FDA-Public Use
  Company Number: PHHY2016CA015347

PATIENT
  Sex: Male

DRUGS (2)
  1. SANDOSTATIN [Suspect]
     Active Substance: OCTREOTIDE ACETATE
     Indication: CARCINOID TUMOUR
     Dosage: ONCE/SINGLE
     Route: 058
     Dates: start: 20151120, end: 20151120
  2. SANDOSTATIN LAR DEPOT [Suspect]
     Active Substance: OCTREOTIDE ACETATE
     Indication: CARCINOID TUMOUR
     Dosage: 30 MG, QMO EVERY 4 WEEKS
     Route: 030
     Dates: start: 20151221

REACTIONS (3)
  - Dehydration [Unknown]
  - Nausea [Unknown]
  - Vomiting [Unknown]
